FAERS Safety Report 18982394 (Version 1)
Quarter: 2021Q1

REPORT INFORMATION
  Report Type: Report from Study
  Country: BR (occurrence: BR)
  Receive Date: 20210308
  Receipt Date: 20210308
  Transmission Date: 20210420
  Serious: Yes (Other)
  Sender: FDA-Public Use
  Company Number: BR-TAKEDA-2021TUS013815

PATIENT
  Age: 6 Year
  Sex: Male
  Weight: 28.8 kg

DRUGS (1)
  1. HEMO?8R [Suspect]
     Active Substance: ANTIHEMOPHILIC FACTOR, HUMAN RECOMBINANT
     Indication: FACTOR VIII DEFICIENCY
     Dosage: 750 INTERNATIONAL UNIT, QOD
     Route: 042
     Dates: start: 20170615

REACTIONS (5)
  - Irritability [Unknown]
  - Phimosis [Unknown]
  - Poor venous access [Recovered/Resolved]
  - Fall [Unknown]
  - Inappropriate schedule of product administration [Recovered/Resolved]

NARRATIVE: CASE EVENT DATE: 20210223
